FAERS Safety Report 6189025-6 (Version None)
Quarter: 2009Q2

REPORT INFORMATION
  Report Type: 
  Country: None (occurrence: None)
  Receive Date: 20090513
  Receipt Date: 20090506
  Transmission Date: 20091009
  Serious: Yes (Other)
  Sender: FDA-Public Use
  Company Number: BR-ELI_LILLY_AND_COMPANY-BR200905001177

PATIENT
  Age: 64 Year
  Sex: Female
  Weight: 67 kg

DRUGS (5)
  1. HUMALOG [Suspect]
     Indication: DIABETES MELLITUS
     Dosage: UNK, UNKNOWN
     Route: 065
     Dates: start: 20070101
  2. METICORTEN [Concomitant]
     Dosage: UNK, UNKNOWN
     Route: 065
  3. OMEPRAZOL [Concomitant]
     Dosage: UNK, UNKNOWN
     Route: 065
  4. BACTRIM [Concomitant]
     Indication: IMMUNODEFICIENCY
     Dosage: UNK, UNKNOWN
     Route: 065
  5. NISTATIN [Concomitant]
     Dosage: UNK, UNKNOWN
     Route: 065

REACTIONS (2)
  - ANAEMIA [None]
  - LYMPHOMA [None]
